FAERS Safety Report 21578883 (Version 1)
Quarter: 2022Q4

REPORT INFORMATION
  Report Type: Spontaneous
  Country: US (occurrence: US)
  Receive Date: 20221110
  Receipt Date: 20221110
  Transmission Date: 20230113
  Serious: No
  Sender: FDA-Public Use
  Company Number: US-SANOFI-01350123

PATIENT
  Age: 26 Year
  Sex: Male

DRUGS (4)
  1. DUPIXENT [Suspect]
     Active Substance: DUPILUMAB
     Indication: Dermatitis atopic
     Dosage: 300 MG QOW
     Route: 058
     Dates: start: 202001
  2. DUPIXENT [Suspect]
     Active Substance: DUPILUMAB
     Dosage: Q3W
     Route: 058
  3. DUPIXENT [Suspect]
     Active Substance: DUPILUMAB
     Dosage: Q4W
     Route: 058
     Dates: end: 202202
  4. DUPIXENT [Suspect]
     Active Substance: DUPILUMAB
     Dosage: UNK
     Route: 058
     Dates: start: 202207, end: 202208

REACTIONS (5)
  - Impaired healing [Not Recovered/Not Resolved]
  - Rebound atopic dermatitis [Unknown]
  - Product dose omission issue [Unknown]
  - Pilonidal sinus repair [Not Recovered/Not Resolved]
  - Inappropriate schedule of product administration [Unknown]

NARRATIVE: CASE EVENT DATE: 20210601
